FAERS Safety Report 12198230 (Version 1)
Quarter: 2016Q1

REPORT INFORMATION
  Report Type: Spontaneous
  Country: US (occurrence: None)
  Receive Date: 20160321
  Receipt Date: 20160321
  Transmission Date: 20160526
  Serious: Yes (Other)
  Sender: FDA-Public Use
  Company Number: None

PATIENT
  Age: 58 Year
  Sex: Female
  Weight: 66.68 kg

DRUGS (3)
  1. BUTALBITAL [Concomitant]
     Active Substance: BUTALBITAL
  2. XANAX [Concomitant]
     Active Substance: ALPRAZOLAM
  3. PROLIA [Suspect]
     Active Substance: DENOSUMAB
     Indication: OSTEOPOROSIS
     Dosage: EVERY 6 MONTHS
     Dates: start: 20151113

REACTIONS (4)
  - Throat irritation [None]
  - Immune system disorder [None]
  - Candida infection [None]
  - Helicobacter infection [None]

NARRATIVE: CASE EVENT DATE: 20151113
